FAERS Safety Report 19028975 (Version 1)
Quarter: 2021Q1

REPORT INFORMATION
  Report Type: Other
  Country: DE (occurrence: DE)
  Receive Date: 20210319
  Receipt Date: 20210319
  Transmission Date: 20210420
  Serious: Yes (Hospitalization)
  Sender: FDA-Public Use
  Company Number: DE-35507-2021-03270

PATIENT
  Age: 7 Year
  Sex: Female
  Weight: 25 kg

DRUGS (4)
  1. LEVETIRACETAM. [Suspect]
     Active Substance: LEVETIRACETAM
     Indication: FRONTAL LOBE EPILEPSY
     Dosage: 60 MILLIGRAM/KILOGRAM, QD
     Route: 048
  2. OXCARBAZEPIN [Suspect]
     Active Substance: OXCARBAZEPINE
     Indication: FRONTAL LOBE EPILEPSY
     Dosage: UNK
     Route: 065
  3. LEVETIRACETAM. [Suspect]
     Active Substance: LEVETIRACETAM
     Dosage: 30 MILLIGRAM/KILOGRAM, QD
     Route: 048
  4. CEFPODOXIME [Concomitant]
     Active Substance: CEFPODOXIME
     Indication: PRODUCT USED FOR UNKNOWN INDICATION
     Dosage: UNK
     Route: 048

REACTIONS (1)
  - Headache [Not Recovered/Not Resolved]

NARRATIVE: CASE EVENT DATE: 20180801
